FAERS Safety Report 7983407 (Version 7)
Quarter: 2013Q2

REPORT INFORMATION
  Report Type: Spontaneous
  Country: US (occurrence: US)
  Receive Date: 20110609
  Receipt Date: 20130530
  Transmission Date: 20140414
  Serious: Yes (Hospitalization, Other)
  Sender: FDA-Public Use
  Company Number: US-ASTRAZENECA-2010SE48550

PATIENT
  Age: 55 Year
  Sex: Male
  Weight: 83.9 kg

DRUGS (10)
  1. CRESTOR [Suspect]
     Route: 048
  2. CRESTOR [Suspect]
     Route: 048
  3. CRESTOR [Suspect]
     Route: 048
  4. PLAVIX [Concomitant]
  5. AVAPRO [Concomitant]
  6. ZETIA [Concomitant]
  7. VALIUM [Concomitant]
  8. AVALIDE [Concomitant]
     Dosage: 300/12.5 MG EVERY DAY
  9. BYSTOLIC [Concomitant]
  10. LASIX [Concomitant]

REACTIONS (21)
  - Cerebrovascular disorder [Unknown]
  - Coronary artery disease [Unknown]
  - Rotator cuff syndrome [Unknown]
  - Coronary arterial stent insertion [Unknown]
  - Coronary artery occlusion [Unknown]
  - Myocardial infarction [Unknown]
  - Neurofibromatosis [Unknown]
  - Carotid artery stenosis [Unknown]
  - Fall [Unknown]
  - Tooth fracture [Unknown]
  - Asthma [Unknown]
  - Back pain [Unknown]
  - Dyslexia [Unknown]
  - Dysuria [Unknown]
  - Hyperlipidaemia [Unknown]
  - Hypertension [Unknown]
  - Hypotension [Unknown]
  - Panic attack [Unknown]
  - Weight decreased [Unknown]
  - Visual impairment [Unknown]
  - Haemorrhage [Unknown]
